FAERS Safety Report 4725058-1 (Version None)
Quarter: 2005Q3

REPORT INFORMATION
  Report Type: 
  Country: None (occurrence: None)
  Receive Date: 20050721
  Receipt Date: 20050708
  Transmission Date: 20060218
  Serious: Yes (Other)
  Sender: FDA-Public Use
  Company Number: 200512145BCC

PATIENT
  Age: 73 Year
  Sex: Male
  Weight: 86.1834 kg

DRUGS (16)
  1. ALEVE [Suspect]
     Indication: BACK PAIN
     Dosage: 220 MG, QD, ORAL
     Route: 048
     Dates: start: 20050516, end: 20050518
  2. ALEVE [Suspect]
     Indication: KNEE ARTHROPLASTY
     Dosage: 220 MG, QD, ORAL
     Route: 048
     Dates: start: 20050516, end: 20050518
  3. ASPIRIN [Suspect]
     Indication: HEADACHE
     Dosage: ORAL
     Route: 048
  4. PRINIVIL [Concomitant]
  5. LASIX [Concomitant]
  6. TENORMIN [Concomitant]
  7. VITAMIN B COMPLEX CAP [Concomitant]
  8. EULEXIN [Concomitant]
  9. COUMADIN [Concomitant]
  10. STORE BRAND ASPIRIN [Concomitant]
  11. MULTI-VITAMIN [Concomitant]
  12. FLOMAX [Concomitant]
  13. GLUCOSAMINE [Concomitant]
  14. ERYTHROMYCIN [Concomitant]
  15. SPECTOZOLE [Concomitant]
  16. LUPRON [Concomitant]

REACTIONS (4)
  - DIARRHOEA [None]
  - HAEMATURIA [None]
  - SWELLING FACE [None]
  - URINARY TRACT DISORDER [None]
